FAERS Safety Report 4387489-1 (Version None)
Quarter: 2004Q2

REPORT INFORMATION
  Report Type: 
  Country: None (occurrence: None)
  Receive Date: 20040629
  Receipt Date: 20040629
  Transmission Date: 20050107
  Serious: Yes (Death, Life-Threatening, Hospitalization)
  Sender: FDA-Public Use
  Company Number: None

PATIENT
  Sex: Male

DRUGS (3)
  1. TAXOTERE [Suspect]
     Indication: OESOPHAGEAL CARCINOMA
     Dosage: 22.5 MG /M2 IV
     Route: 042
     Dates: start: 20031031
  2. CISPLATIN [Suspect]
     Indication: OESOPHAGEAL CARCINOMA
     Dosage: 25 MG/M2 IV
     Route: 042
     Dates: start: 20031031
  3. CPT-11 [Suspect]
     Indication: OESOPHAGEAL CARCINOMA
     Dosage: 37.5 MG/M2 IV
     Route: 042
     Dates: start: 20031031

REACTIONS (2)
  - DISEASE PROGRESSION [None]
  - UPPER GASTROINTESTINAL HAEMORRHAGE [None]
